FAERS Safety Report 11284025 (Version 3)
Quarter: 2025Q1

REPORT INFORMATION
  Report Type: Spontaneous
  Country: JP (occurrence: JP)
  Receive Date: 20150720
  Receipt Date: 20250227
  Transmission Date: 20250408
  Serious: Yes (Death, Hospitalization)
  Sender: BAYER HEALTHCARE PHARMACEUTICALS INC.
  Company Number: JP-BAYER-2015-376126

PATIENT
  Age: 63 Year
  Sex: Male

DRUGS (8)
  1. STIVARGA [Suspect]
     Active Substance: REGORAFENIB MONOHYDRATE
     Indication: Colon cancer stage IV
     Dosage: 160 MG, QD
     Route: 048
     Dates: start: 20141117, end: 20141117
  2. NOVOLIN R [Concomitant]
     Active Substance: INSULIN HUMAN
     Dosage: 8 U, OM
  3. LANTUS [Concomitant]
     Active Substance: INSULIN GLARGINE
     Dosage: 10 U, OM
  4. LOSARTAN POTASSIUM [Concomitant]
     Active Substance: LOSARTAN POTASSIUM
     Dosage: DAILY DOSE 25 MG
     Route: 048
  5. ROZEREM [Concomitant]
     Active Substance: RAMELTEON
     Dosage: DAILY DOSE 8 MG
     Route: 048
  6. CODEINE PHOSPHATE [Concomitant]
     Active Substance: CODEINE PHOSPHATE
     Dosage: DAILY DOSE 6 G
     Route: 048
  7. CARBOCYSTEINE [Concomitant]
     Active Substance: CARBOCYSTEINE
     Dosage: DAILY DOSE 1500 MG
     Route: 048
  8. CEFTRIAXONE [Concomitant]
     Active Substance: CEFTRIAXONE
     Route: 042

REACTIONS (2)
  - Colon cancer [Fatal]
  - Hyperammonaemic encephalopathy [Recovered/Resolved]

NARRATIVE: CASE EVENT DATE: 20141118
